FAERS Safety Report 18379211 (Version 2)
Quarter: 2020Q4

REPORT INFORMATION
  Report Type: Spontaneous
  Country: BR (occurrence: BR)
  Receive Date: 20201013
  Receipt Date: 20201030
  Transmission Date: 20210114
  Serious: Yes (Disabling)
  Sender: FDA-Public Use
  Company Number: BR-UCBSA-2020039304

PATIENT
  Age: 46 Year
  Sex: Female
  Weight: 66 kg

DRUGS (4)
  1. KEPPRA [Suspect]
     Active Substance: LEVETIRACETAM
     Dosage: UNK
     Route: 048
  2. TYKERB [Concomitant]
     Active Substance: LAPATINIB DITOSYLATE
     Indication: CHEMOTHERAPY
     Dosage: 5 TABLETS DAILY
  3. KEPPRA [Suspect]
     Active Substance: LEVETIRACETAM
     Indication: EPILEPSY
     Dosage: 750 MILLIGRAM, 2X/DAY (BID)
     Route: 048
     Dates: end: 20200928
  4. TRASTUZUMAB. [Concomitant]
     Active Substance: TRASTUZUMAB
     Indication: CHEMOTHERAPY
     Dosage: UNK, EV 3 WEEKS

REACTIONS (5)
  - Partial seizures [Recovered/Resolved]
  - Muscular weakness [Not Recovered/Not Resolved]
  - Tremor [Recovered/Resolved]
  - Muscle spasms [Recovered/Resolved]
  - Drug ineffective [Unknown]

NARRATIVE: CASE EVENT DATE: 202009
